FAERS Safety Report 7162073-5 (Version None)
Quarter: 2010Q4

REPORT INFORMATION
  Report Type: 
  Country: None (occurrence: None)
  Receive Date: 20101202
  Receipt Date: 20101117
  Transmission Date: 20110411
  Serious: Yes (Hospitalization)
  Sender: FDA-Public Use
  Company Number: US-2010-2089

PATIENT
  Age: 84 Year
  Sex: Female
  Weight: 53.5 kg

DRUGS (9)
  1. NAVELBINE [Suspect]
     Indication: NON-SMALL CELL LUNG CANCER
     Dosage: 25 MG;
     Dates: start: 20090825, end: 20091022
  2. ERLOTINIB [Suspect]
     Indication: NON-SMALL CELL LUNG CANCER
     Dosage: 150 MG PO
     Route: 048
     Dates: start: 20090707, end: 20090819
  3. PLAVIX [Concomitant]
  4. IMODIUM [Concomitant]
  5. VITAMIN D [Concomitant]
  6. CALCIUM MEFOLINATE [Concomitant]
  7. REQUIP [Concomitant]
  8. COMPAZINE [Concomitant]
  9. LASIX [Concomitant]

REACTIONS (7)
  - ASTHENIA [None]
  - CONFUSIONAL STATE [None]
  - DIARRHOEA [None]
  - MALIGNANT NEOPLASM PROGRESSION [None]
  - NON-SMALL CELL LUNG CANCER [None]
  - RESPIRATORY FAILURE [None]
  - URINARY TRACT INFECTION [None]
